FAERS Safety Report 21404386 (Version 2)
Quarter: 2022Q4

REPORT INFORMATION
  Report Type: Spontaneous
  Country: US (occurrence: US)
  Receive Date: 20221003
  Receipt Date: 20221010
  Transmission Date: 20230112
  Serious: No
  Sender: FDA-Public Use
  Company Number: US-SANOFI-01298903

PATIENT
  Age: 17 Year

DRUGS (1)
  1. DUPIXENT [Suspect]
     Active Substance: DUPILUMAB
     Dosage: 300 MG

REACTIONS (4)
  - Arthropathy [Unknown]
  - Injection site swelling [Recovering/Resolving]
  - Arthralgia [Unknown]
  - Mobility decreased [Recovered/Resolved]
